FAERS Safety Report 22639703 (Version 1)
Quarter: 2023Q2

REPORT INFORMATION
  Report Type: Spontaneous
  Country: CA (occurrence: CA)
  Receive Date: 20230626
  Receipt Date: 20230626
  Transmission Date: 20230722
  Serious: Yes (Other)
  Sender: FDA-Public Use
  Company Number: CA-STRIDES ARCOLAB LIMITED-2023SP009967

PATIENT
  Age: 60 Year
  Sex: Female

DRUGS (5)
  1. METHOTREXATE [Suspect]
     Active Substance: METHOTREXATE
     Indication: Polyarteritis nodosa
     Dosage: UNK
     Route: 065
  2. METHOTREXATE [Suspect]
     Active Substance: METHOTREXATE
     Dosage: UNK; TAPER
     Route: 065
  3. PREDNISOLONE [Suspect]
     Active Substance: PREDNISOLONE
     Indication: Polyarteritis nodosa
     Dosage: UNK
     Route: 065
  4. DAPSONE [Suspect]
     Active Substance: DAPSONE
     Indication: Polyarteritis nodosa
     Dosage: UNK
     Route: 065
  5. COLCHICINE [Suspect]
     Active Substance: COLCHICINE
     Indication: Polyarteritis nodosa
     Dosage: UNK
     Route: 065

REACTIONS (3)
  - Rebound effect [Unknown]
  - Treatment failure [Unknown]
  - Off label use [Unknown]
